FAERS Safety Report 13533326 (Version 1)
Quarter: 2017Q2

REPORT INFORMATION
  Report Type: Report from Study
  Country: US (occurrence: US)
  Receive Date: 20170510
  Receipt Date: 20170510
  Transmission Date: 20170830
  Serious: Yes (Hospitalization)
  Sender: FDA-Public Use
  Company Number: US-AMGEN-USACT2015022556

PATIENT
  Age: 57 Year
  Sex: Female
  Weight: 99.7 kg

DRUGS (11)
  1. PROZAC [Concomitant]
     Active Substance: FLUOXETINE HYDROCHLORIDE
     Dosage: 10-20 MG, UNK
     Route: 048
     Dates: start: 201310
  2. TALIMOGENE LAHERPAREPVEC [Suspect]
     Active Substance: TALIMOGENE LAHERPAREPVEC
     Indication: MALIGNANT MELANOMA
     Dosage: 3 ML, UNK
     Route: 026
     Dates: start: 20150116
  3. MK-3475 [Suspect]
     Active Substance: PEMBROLIZUMAB
     Indication: MALIGNANT MELANOMA
     Dosage: 200 MG, UNK
     Route: 042
     Dates: start: 20150218
  4. BIOTIN [Concomitant]
     Active Substance: BIOTIN
     Dosage: 100 MUG, UNK
     Route: 048
     Dates: start: 201309
  5. TUMS [Concomitant]
     Active Substance: CALCIUM CARBONATE
     Dosage: 1 UNK, UNK
     Route: 048
     Dates: start: 2010
  6. VITAMIN C [Concomitant]
     Active Substance: ASCORBIC ACID
     Dosage: 1000 MG, UNK
     Route: 048
     Dates: start: 201309
  7. TYLENOL PM [Concomitant]
     Active Substance: ACETAMINOPHEN\DIPHENHYDRAMINE
     Dosage: 1 UNK, UNK
     Route: 048
     Dates: start: 201308
  8. ALEVE [Concomitant]
     Active Substance: NAPROXEN SODIUM
     Dosage: 1 UNK, UNK
     Route: 048
     Dates: start: 201309
  9. ZOCOR [Concomitant]
     Active Substance: SIMVASTATIN
     Dosage: 5-10 MG, QD
     Route: 048
     Dates: start: 2005
  10. SALMON OIL [Concomitant]
     Active Substance: FISH OIL
     Dosage: 1200 MG, UNK
     Route: 048
     Dates: start: 201309
  11. VITAMIN D3 [Concomitant]
     Active Substance: CHOLECALCIFEROL
     Dosage: 5000 MG, UNK
     Route: 048
     Dates: start: 201309

REACTIONS (1)
  - Cytokine release syndrome [Recovered/Resolved]

NARRATIVE: CASE EVENT DATE: 20150304
